FAERS Safety Report 24542344 (Version 1)
Quarter: 2024Q4

REPORT INFORMATION
  Report Type: Spontaneous
  Country: US (occurrence: US)
  Receive Date: 20241023
  Receipt Date: 20241023
  Transmission Date: 20250115
  Serious: No
  Sender: INSUD PHARMA
  Company Number: US-INSUD PHARMA-2410US07778

PATIENT

DRUGS (1)
  1. ESTRADIOL [Suspect]
     Active Substance: ESTRADIOL
     Indication: Menopausal symptoms
     Route: 061

REACTIONS (5)
  - Drug ineffective [Unknown]
  - Hot flush [Unknown]
  - Palpitations [Unknown]
  - Insomnia [Unknown]
  - Product substitution issue [Unknown]
